FAERS Safety Report 16961541 (Version 1)
Quarter: 2019Q4

REPORT INFORMATION
  Report Type: Spontaneous
  Country: AU (occurrence: AU)
  Receive Date: 20191024
  Receipt Date: 20191024
  Transmission Date: 20200122
  Serious: Yes (Disabling)
  Sender: FDA-Public Use
  Company Number: None

PATIENT
  Sex: Female
  Weight: 58 kg

DRUGS (1)
  1. AZATHIOPRINE. [Suspect]
     Active Substance: AZATHIOPRINE

REACTIONS (12)
  - Photophobia [None]
  - Social avoidant behaviour [None]
  - Anxiety [None]
  - Disturbance in social behaviour [None]
  - Vision blurred [None]
  - Abdominal distension [None]
  - Abdominal pain upper [None]
  - Thinking abnormal [None]
  - Amnesia [None]
  - Diarrhoea [None]
  - Eye pain [None]
  - Malaise [None]
